FAERS Safety Report 14274834 (Version 1)
Quarter: 2017Q4

REPORT INFORMATION
  Report Type: Spontaneous
  Country: US (occurrence: US)
  Receive Date: 20171212
  Receipt Date: 20171212
  Transmission Date: 20180321
  Serious: Yes (Other)
  Sender: FDA-Public Use
  Company Number: US-ENDO PHARMACEUTICALS INC-2017-007887

PATIENT
  Sex: Female
  Weight: 63.5 kg

DRUGS (12)
  1. VITAMIN C [Concomitant]
     Active Substance: ASCORBIC ACID
     Indication: ROUTINE HEALTH MAINTENANCE
     Dosage: 1000 MG, A DAY
     Route: 065
  2. CRANBERRY                          /01512301/ [Concomitant]
     Active Substance: CRANBERRY
     Indication: URINARY TRACT INFECTION
     Dosage: 1 DF, TID
     Route: 048
  3. PREDNISONE TABLETS 10MG [Suspect]
     Active Substance: PREDNISONE
     Indication: AUTOIMMUNE HEPATITIS
     Dosage: 1 DF, OD
     Route: 048
     Dates: start: 1993
  4. ASPIRIN                            /00002701/ [Concomitant]
     Active Substance: ASPIRIN
     Indication: CEREBROVASCULAR ACCIDENT PROPHYLAXIS
     Dosage: 1 DF, OD
     Route: 048
     Dates: start: 2016
  5. CALCIUM [Concomitant]
     Active Substance: CALCIUM
     Indication: BONE DISORDER
     Dosage: 500 MG, BID
     Route: 048
  6. IMURAN [Concomitant]
     Active Substance: AZATHIOPRINE
     Indication: AUTOIMMUNE HEPATITIS
     Dosage: 1 DF, OD
     Route: 048
     Dates: start: 1993
  7. LUNESTA [Concomitant]
     Active Substance: ESZOPICLONE
     Indication: INSOMNIA
     Dosage: 3 MG, AT NIGHT
     Route: 048
     Dates: start: 2016
  8. VITAMIN C [Concomitant]
     Active Substance: ASCORBIC ACID
     Indication: PROPHYLAXIS
  9. AMLODIPINE [Concomitant]
     Active Substance: AMLODIPINE BESYLATE
     Indication: HYPERTENSION
     Dosage: 1 DF, OD
     Route: 048
     Dates: start: 201704
  10. POTASSIUM [Concomitant]
     Active Substance: POTASSIUM
     Indication: BLOOD POTASSIUM DECREASED
     Dosage: 1 DF, TID
     Route: 048
     Dates: start: 2007
  11. OCUVITE [Concomitant]
     Active Substance: VITAMINS
     Indication: EYE DISORDER
     Dosage: 1 DF, OD
     Route: 048
     Dates: start: 2002
  12. METOPROLOL. [Concomitant]
     Active Substance: METOPROLOL
     Indication: BLOOD PRESSURE ABNORMAL
     Dosage: 50MG TABLET IN THE MORNING AND 25 MG AT NIGHT
     Route: 065
     Dates: start: 2005

REACTIONS (2)
  - Body height decreased [Unknown]
  - Osteoarthritis [Unknown]
